FAERS Safety Report 4909903-2 (Version None)
Quarter: 2006Q1

REPORT INFORMATION
  Report Type: 
  Country: None (occurrence: None)
  Receive Date: 20060213
  Receipt Date: 20060120
  Transmission Date: 20060701
  Serious: Yes (Life-Threatening, Hospitalization, Other)
  Sender: FDA-Public Use
  Company Number: 2006AP00351

PATIENT
  Age: 7984 Day
  Sex: Female

DRUGS (2)
  1. SEROQUEL [Suspect]
     Indication: PSYCHOTIC DISORDER
     Route: 048
     Dates: start: 20051230, end: 20060108
  2. SEROQUEL [Suspect]
     Dosage: OVERDOSE: POSSIBLY 25-30 TABLETS TAKEN
     Route: 048
     Dates: start: 20060105, end: 20060105

REACTIONS (11)
  - ALCOHOL USE [None]
  - APNOEA [None]
  - BLOOD CREATINE PHOSPHOKINASE INCREASED [None]
  - DELIRIUM [None]
  - FAMILY STRESS [None]
  - INTENTIONAL OVERDOSE [None]
  - LOSS OF CONSCIOUSNESS [None]
  - SUICIDE ATTEMPT [None]
  - TACHYCARDIA [None]
  - VOMITING [None]
  - WHITE BLOOD CELL COUNT INCREASED [None]
